FAERS Safety Report 11307221 (Version 5)
Quarter: 2015Q3

REPORT INFORMATION
  Report Type: Report from Study
  Country: DE (occurrence: DE)
  Receive Date: 20150723
  Receipt Date: 20150829
  Transmission Date: 20151125
  Serious: Yes (Hospitalization)
  Sender: FDA-Public Use
  Company Number: DE-009507513-1507DEU010765

PATIENT
  Age: 63 Year
  Sex: Male
  Weight: 90 kg

DRUGS (6)
  1. RIBAVIRIN. [Suspect]
     Active Substance: RIBAVIRIN
     Indication: CHRONIC HEPATITIS C
     Dosage: TOTAL DAILY DOSE: 1200 MG , QD
     Route: 048
     Dates: start: 20140222, end: 20140515
  2. SOVALDI [Suspect]
     Active Substance: SOFOSBUVIR
     Indication: CHRONIC HEPATITIS C
     Dosage: 400 MG, QD
     Route: 048
     Dates: start: 20140222, end: 20140515
  3. PEGINTRON [Suspect]
     Active Substance: PEGINTERFERON ALFA-2B
     Indication: CHRONIC HEPATITIS C
     Dosage: 1.5/KG BODY WEIGHT, WEEKLY
     Route: 058
     Dates: start: 20140222, end: 20140515
  4. ISOPTIN [Concomitant]
     Active Substance: VERAPAMIL HYDROCHLORIDE
     Indication: CARDIOVASCULAR DISORDER
     Dosage: 80 MG, QD
     Route: 048
  5. NOVODIGAL [Concomitant]
     Active Substance: .BETA.-ACETYLDIGOXIN
     Indication: CARDIOVASCULAR DISORDER
     Dosage: 0.2 MG, QD
     Route: 048
  6. MARCUMAR [Concomitant]
     Active Substance: PHENPROCOUMON
     Indication: CARDIOVASCULAR DISORDER
     Dosage: 3 MG, QD

REACTIONS (6)
  - Depression [Recovered/Resolved]
  - Dyspnoea [Recovered/Resolved]
  - Transient ischaemic attack [Recovered/Resolved]
  - Alopecia [Unknown]
  - Nocturia [Recovered/Resolved]
  - Transient ischaemic attack [Not Recovered/Not Resolved]

NARRATIVE: CASE EVENT DATE: 20140321
